FAERS Safety Report 16263621 (Version 1)
Quarter: 2019Q2

REPORT INFORMATION
  Report Type: Report from Study
  Country: None (occurrence: CO)
  Receive Date: 20190502
  Receipt Date: 20190502
  Transmission Date: 20190711
  Serious: Yes (Other)
  Sender: FDA-Public Use
  Company Number: CO-ABBVIE-19K-036-2764731-00

PATIENT
  Age: 26 Year
  Sex: Male
  Weight: 52 kg

DRUGS (2)
  1. HUMIRA [Suspect]
     Active Substance: ADALIMUMAB
     Indication: ANKYLOSING SPONDYLITIS
     Route: 058
     Dates: end: 20190314
  2. HUMIRA [Suspect]
     Active Substance: ADALIMUMAB
     Indication: ANKYLOSING SPONDYLITIS
     Route: 058
     Dates: start: 20150929

REACTIONS (3)
  - Gingival pain [Recovering/Resolving]
  - Tooth extraction [Recovering/Resolving]
  - Noninfective gingivitis [Recovering/Resolving]

NARRATIVE: CASE EVENT DATE: 2018
